FAERS Safety Report 5763171-0 (Version None)
Quarter: 2008Q2

REPORT INFORMATION
  Report Type: 
  Country: None (occurrence: None)
  Receive Date: 20080609
  Receipt Date: 20080528
  Transmission Date: 20081010
  Serious: Yes (Other)
  Sender: FDA-Public Use
  Company Number: US-PFIZER INC-2008045855

PATIENT
  Sex: Female
  Weight: 54.4 kg

DRUGS (5)
  1. LYRICA [Suspect]
     Indication: PAIN IN EXTREMITY
  2. LYRICA [Suspect]
  3. ETANERCEPT [Concomitant]
  4. AMITRIPTYLINE HCL [Concomitant]
  5. VITAMINS [Concomitant]

REACTIONS (1)
  - CONVULSION [None]
